FAERS Safety Report 15823463 (Version 1)
Quarter: 2019Q1

REPORT INFORMATION
  Report Type: Spontaneous
  Country: IT (occurrence: IT)
  Receive Date: 20190114
  Receipt Date: 20190114
  Transmission Date: 20190417
  Serious: Yes (Other)
  Sender: FDA-Public Use
  Company Number: IT-ALLERGAN-1901804US

PATIENT
  Age: 83 Year
  Sex: Male

DRUGS (3)
  1. CARDURA [Suspect]
     Active Substance: DOXAZOSIN MESYLATE
     Indication: HYPERTENSION
     Dosage: 2 MG, UNK
     Route: 048
     Dates: start: 20180101
  2. NEBIVOLOL HCL - BP [Suspect]
     Active Substance: NEBIVOLOL
     Indication: HYPERTENSION
     Dosage: 5 MG, QD
     Route: 048
     Dates: start: 20180101
  3. ATOVER [ENALAPRIL MALEATE;LERCANIDIPINE HYDROCHLORIDE] [Suspect]
     Active Substance: ENALAPRIL MALEATE\LERCANIDIPINE HYDROCHLORIDE
     Indication: HYPERTENSION
     Dosage: 20 MG/20 MG, UNK
     Route: 048
     Dates: start: 20181115

REACTIONS (4)
  - Syncope [Recovering/Resolving]
  - Vomiting [Recovering/Resolving]
  - Nausea [Recovering/Resolving]
  - Overdose [Recovering/Resolving]

NARRATIVE: CASE EVENT DATE: 20181122
